FAERS Safety Report 4900770-X (Version None)
Quarter: 2006Q1

REPORT INFORMATION
  Report Type: 
  Country: None (occurrence: None)
  Receive Date: 20060201
  Receipt Date: 20060117
  Transmission Date: 20060701
  Serious: Yes (Other)
  Sender: FDA-Public Use
  Company Number: 2006US000131

PATIENT
  Age: 43 Year
  Sex: Male

DRUGS (4)
  1. AMBISOME [Suspect]
     Indication: CANDIDIASIS
  2. ZIDOVUDINE [Concomitant]
  3. INDINAVIR (INDINAVIR) [Concomitant]
  4. LAMIVUDINE [Concomitant]

REACTIONS (1)
  - NEPHROGENIC DIABETES INSIPIDUS [None]
